FAERS Safety Report 5665315-8 (Version None)
Quarter: 2008Q1

REPORT INFORMATION
  Report Type: 
  Country: None (occurrence: None)
  Receive Date: 20080314
  Receipt Date: 20070711
  Transmission Date: 20080703
  Serious: No
  Sender: FDA-Public Use
  Company Number: US-ABBOTT-07P-163-0421203-00

PATIENT
  Sex: Female

DRUGS (2)
  1. HUMIRA [Suspect]
     Indication: DRUG USE FOR UNKNOWN INDICATION
     Dates: start: 20070711, end: 20070711
  2. HUMIRA [Concomitant]
     Dates: start: 20070711, end: 20070711

REACTIONS (1)
  - ACCIDENTAL EXPOSURE [None]
